FAERS Safety Report 13693869 (Version 2)
Quarter: 2017Q3

REPORT INFORMATION
  Report Type: Spontaneous
  Country: JP (occurrence: JP)
  Receive Date: 20170627
  Receipt Date: 20170711
  Transmission Date: 20171127
  Serious: Yes (Hospitalization)
  Sender: FDA-Public Use
  Company Number: JP-JNJFOC-20170623392

PATIENT
  Age: 83 Year
  Sex: Male
  Weight: 52 kg

DRUGS (2)
  1. XARELTO [Suspect]
     Active Substance: RIVAROXABAN
     Indication: ATRIAL FIBRILLATION
     Route: 048
     Dates: start: 20130520, end: 20131125
  2. TAMBOCOR [Concomitant]
     Active Substance: FLECAINIDE ACETATE
     Route: 065

REACTIONS (1)
  - Cerebral artery occlusion [Unknown]
